FAERS Safety Report 25709434 (Version 1)
Quarter: 2025Q3

REPORT INFORMATION
  Report Type: Spontaneous
  Country: US (occurrence: US)
  Receive Date: 20250821
  Receipt Date: 20250821
  Transmission Date: 20251021
  Serious: Yes (Hospitalization)
  Sender: SANOFI AVENTIS
  Company Number: US-SA-2025SA248190

PATIENT
  Age: 15 Year
  Sex: Male

DRUGS (2)
  1. ALPROLIX [Suspect]
     Active Substance: EFTRENONACOG ALFA
     Route: 042
  2. ALPROLIX [Suspect]
     Active Substance: EFTRENONACOG ALFA
     Route: 042

REACTIONS (4)
  - Limb injury [Unknown]
  - Pain in extremity [Unknown]
  - Haemorrhage [Recovering/Resolving]
  - Hypokinesia [Unknown]

NARRATIVE: CASE EVENT DATE: 20250728
